FAERS Safety Report 12615283 (Version 2)
Quarter: 2016Q4

REPORT INFORMATION
  Report Type: Spontaneous
  Country: US (occurrence: US)
  Receive Date: 20160802
  Receipt Date: 20161004
  Transmission Date: 20170207
  Serious: Yes (Hospitalization, Other)
  Sender: FDA-Public Use
  Company Number: US-ASTRAZENECA-2016SE80264

PATIENT
  Age: 72 Year
  Sex: Male

DRUGS (4)
  1. PRILOSEC [Suspect]
     Active Substance: OMEPRAZOLE MAGNESIUM
     Indication: GASTROOESOPHAGEAL REFLUX DISEASE
     Dosage: OMEPRAZOLE (ZYDUS)
     Route: 048
     Dates: end: 20151206
  2. PRILOSEC [Suspect]
     Active Substance: OMEPRAZOLE MAGNESIUM
     Indication: GASTROOESOPHAGEAL REFLUX DISEASE
     Route: 048
     Dates: start: 1995
  3. PRILOSEC [Suspect]
     Active Substance: OMEPRAZOLE MAGNESIUM
     Indication: GASTROOESOPHAGEAL REFLUX DISEASE
     Route: 048
     Dates: start: 1995
  4. PRILOSEC [Suspect]
     Active Substance: OMEPRAZOLE MAGNESIUM
     Indication: GASTROOESOPHAGEAL REFLUX DISEASE
     Dosage: OMEPRAZOLE (ZYDUS)
     Route: 048
     Dates: end: 20151206

REACTIONS (24)
  - Pulse absent [Recovered/Resolved]
  - Hypoaesthesia [Not Recovered/Not Resolved]
  - Fluid retention [Recovered/Resolved]
  - Acute kidney injury [Unknown]
  - Malaise [Not Recovered/Not Resolved]
  - Dizziness [Recovered/Resolved]
  - Oedema peripheral [Unknown]
  - Abdominal distension [Unknown]
  - Compulsive lip biting [Not Recovered/Not Resolved]
  - Rash [Unknown]
  - Infection [Unknown]
  - Pruritus [Unknown]
  - Kidney infection [Recovered/Resolved]
  - Blister [Not Recovered/Not Resolved]
  - Pain [Unknown]
  - Skin discolouration [Not Recovered/Not Resolved]
  - Joint swelling [Unknown]
  - Limb discomfort [Not Recovered/Not Resolved]
  - Peripheral swelling [Not Recovered/Not Resolved]
  - Petit mal epilepsy [Recovered/Resolved]
  - Urinary retention [Unknown]
  - Hypoaesthesia [Not Recovered/Not Resolved]
  - Furuncle [Recovered/Resolved]
  - Blood pressure increased [Unknown]

NARRATIVE: CASE EVENT DATE: 2001
